FAERS Safety Report 10598218 (Version 1)
Quarter: 2014Q4

REPORT INFORMATION
  Report Type: Spontaneous
  Country: FR (occurrence: None)
  Receive Date: 20141119
  Receipt Date: 20141119
  Transmission Date: 20150529
  Serious: Yes (Hospitalization, Other)
  Sender: FDA-Public Use
  Company Number: ADR-2014-02141

PATIENT
  Age: 62 Year
  Sex: Male

DRUGS (5)
  1. ALDACTAZINE [Concomitant]
     Active Substance: ALTHIAZIDE\SPIRONOLACTONE
  2. LIORESAL [Suspect]
     Active Substance: BACLOFEN
     Dates: start: 201309
  3. ESOMEPRAZOLE (ESOMEPRAZOLE) [Concomitant]
     Active Substance: ESOMEPRAZOLE
  4. LIORESAL [Suspect]
     Active Substance: BACLOFEN
     Indication: ALCOHOLISM
     Dates: start: 20130922
  5. TRIATEC (RAMIPRIL) [Concomitant]
     Active Substance: RAMIPRIL

REACTIONS (12)
  - Disorientation [None]
  - Cerebral atrophy [None]
  - Gamma-glutamyltransferase increased [None]
  - Asthenia [None]
  - Hyponatraemia [None]
  - Carotid artery disease [None]
  - Vertigo [None]
  - Alcohol withdrawal syndrome [None]
  - Amnesia [None]
  - Therapy change [None]
  - Confusional state [None]
  - Cell death [None]

NARRATIVE: CASE EVENT DATE: 20130927
